FAERS Safety Report 17948365 (Version 5)
Quarter: 2021Q4

REPORT INFORMATION
  Report Type: Spontaneous
  Country: US (occurrence: US)
  Receive Date: 20200626
  Receipt Date: 20211227
  Transmission Date: 20220303
  Serious: Yes (Other)
  Sender: FDA-Public Use
  Company Number: US-PFIZER INC-2020243095

PATIENT
  Age: 57 Year
  Sex: Female

DRUGS (2)
  1. GENOTROPIN [Suspect]
     Active Substance: SOMATROPIN
     Dosage: 0.3 MG
  2. GENOTROPIN [Suspect]
     Active Substance: SOMATROPIN
     Dosage: 0.1 MG, DAILY
     Dates: start: 20190304

REACTIONS (4)
  - Brain injury [Unknown]
  - Memory impairment [Unknown]
  - Drug dose omission by device [Unknown]
  - Device use issue [Unknown]

NARRATIVE: CASE EVENT DATE: 20210101
